FAERS Safety Report 15507253 (Version 1)
Quarter: 2018Q4

REPORT INFORMATION
  Report Type: Report from Study
  Country: BR (occurrence: BR)
  Receive Date: 20181016
  Receipt Date: 20181016
  Transmission Date: 20190205
  Serious: Yes (Other)
  Sender: FDA-Public Use
  Company Number: BR-JNJFOC-20180918808

PATIENT
  Sex: Female
  Weight: 74 kg

DRUGS (3)
  1. ESC [Concomitant]
     Active Substance: ESCITALOPRAM OXALATE
     Route: 065
  2. ZOLPIDEM [Concomitant]
     Active Substance: ZOLPIDEM\ZOLPIDEM TARTRATE
     Route: 065
  3. STELARA [Suspect]
     Active Substance: USTEKINUMAB
     Indication: PSORIASIS
     Route: 058
     Dates: start: 201707

REACTIONS (2)
  - Postoperative wound infection [Recovered/Resolved]
  - Mammoplasty [Recovered/Resolved]

NARRATIVE: CASE EVENT DATE: 2018
